FAERS Safety Report 9536665 (Version 2)
Quarter: 2013Q4

REPORT INFORMATION
  Report Type: Spontaneous
  Country: US (occurrence: US)
  Receive Date: 20130919
  Receipt Date: 20131023
  Transmission Date: 20140711
  Serious: No
  Sender: FDA-Public Use
  Company Number: US-009507513-1309USA004350

PATIENT
  Sex: Male
  Weight: 118.82 kg

DRUGS (3)
  1. VICTRELIS [Suspect]
     Indication: HEPATITIS C
     Dosage: 800 MG, EVERY 7-9 HOURS, TOTAL DAILY DOE 2400MG
     Route: 048
     Dates: start: 20130531, end: 20130906
  2. RIBAPAK [Suspect]
     Dosage: 600 MG, QD
  3. PEGASYS [Suspect]
     Dosage: 180 MICROGRAM, QW

REACTIONS (1)
  - Drug ineffective [Recovered/Resolved]
